FAERS Safety Report 13577758 (Version 2)
Quarter: 2017Q2

REPORT INFORMATION
  Report Type: Spontaneous
  Country: CH (occurrence: CH)
  Receive Date: 20170524
  Receipt Date: 20170614
  Transmission Date: 20170830
  Serious: Yes (Hospitalization, Other)
  Sender: FDA-Public Use
  Company Number: CH-PFIZER INC-2017227112

PATIENT
  Age: 46 Year
  Sex: Female
  Weight: 65.2 kg

DRUGS (3)
  1. IBUPROFEN. [Interacting]
     Active Substance: IBUPROFEN
     Dosage: 800 MG, 3 IN 1 D, UP TO 3X/DAY AS NEEDED
  2. METHOTREXATE. [Suspect]
     Active Substance: METHOTREXATE
     Indication: PSORIASIS
     Dosage: 2.5 MG, WEEKLY
  3. METHOTREXATE. [Interacting]
     Active Substance: METHOTREXATE
     Indication: POLYARTHRITIS

REACTIONS (6)
  - Acute kidney injury [Recovered/Resolved]
  - Drug interaction [Unknown]
  - Nephrotic syndrome [Recovered/Resolved]
  - Infection [Unknown]
  - Systemic lupus erythematosus [Unknown]
  - Pancytopenia [Recovering/Resolving]

NARRATIVE: CASE EVENT DATE: 20170413
